FAERS Safety Report 25413704 (Version 2)
Quarter: 2025Q3

REPORT INFORMATION
  Report Type: Spontaneous
  Country: GB (occurrence: GB)
  Receive Date: 20250609
  Receipt Date: 20250702
  Transmission Date: 20251021
  Serious: No
  Sender: MYLAN
  Company Number: GB-MYLANLABS-2025M1046626

PATIENT

DRUGS (2)
  1. EPIPEN JR [Suspect]
     Active Substance: EPINEPHRINE
     Indication: Product used for unknown indication
  2. EPIPEN JR [Suspect]
     Active Substance: EPINEPHRINE

REACTIONS (2)
  - Liquid product physical issue [Unknown]
  - Product quality issue [Unknown]
